FAERS Safety Report 9373874 (Version 1)
Quarter: 2013Q2

REPORT INFORMATION
  Report Type: Spontaneous
  Country: US (occurrence: US)
  Receive Date: 20130628
  Receipt Date: 20130628
  Transmission Date: 20140414
  Serious: No
  Sender: FDA-Public Use
  Company Number: US-B.I. PHARMACEUTICALS,INC./RIDGEFIELD-2013-BI-17986BP

PATIENT
  Age: 84 Year
  Sex: Female
  Weight: 69 kg

DRUGS (14)
  1. PRADAXA [Suspect]
     Indication: CEREBROVASCULAR ACCIDENT PROPHYLAXIS
     Dosage: 150 MG
     Route: 048
     Dates: start: 201103
  2. PRADAXA [Suspect]
     Indication: ATRIAL FIBRILLATION
     Dosage: 300 MG
     Route: 048
     Dates: start: 201101, end: 201102
  3. VITAMIN D [Concomitant]
     Indication: VITAMIN D DEFICIENCY
     Route: 048
  4. ALBUTEROL [Concomitant]
     Indication: CHRONIC OBSTRUCTIVE PULMONARY DISEASE
     Route: 055
  5. CARVEDILOL [Concomitant]
     Indication: HYPERTENSION
     Dosage: 3.125 MG
     Route: 048
  6. MULTAQ [Concomitant]
     Indication: ATRIAL FIBRILLATION
     Dosage: 800 MG
     Route: 048
  7. FOLIC ACID [Concomitant]
     Indication: FOLATE DEFICIENCY
     Dosage: 1 MG
     Route: 048
  8. PANTOPRAZOLE [Concomitant]
     Indication: GASTROOESOPHAGEAL REFLUX DISEASE
     Dosage: 40 MG
     Route: 048
  9. ASPIRIN [Concomitant]
     Indication: MYOCARDIAL INFARCTION
     Dosage: 81 MG
     Route: 048
  10. ASPIRIN [Concomitant]
     Indication: ATRIAL FIBRILLATION
  11. ADVAIR [Concomitant]
     Indication: CHRONIC OBSTRUCTIVE PULMONARY DISEASE
     Dosage: STRENGTH: 250MCG/50MCG; DAILY DOSE: 500MCG/100MCG
     Route: 055
  12. PAROXETINE [Concomitant]
     Indication: DEPRESSION
     Dosage: 10 MG
     Route: 048
  13. SYNTHROID [Concomitant]
     Indication: HYPOTHYROIDISM
     Dosage: 0.05 MG
     Route: 048
  14. ATORVASTATIN [Concomitant]
     Indication: BLOOD CHOLESTEROL INCREASED
     Dosage: 20 MG
     Route: 048

REACTIONS (2)
  - Epistaxis [Not Recovered/Not Resolved]
  - Rhinorrhoea [Not Recovered/Not Resolved]
